FAERS Safety Report 8220010-6 (Version None)
Quarter: 2012Q1

REPORT INFORMATION
  Report Type: 
  Country: None (occurrence: None)
  Receive Date: 20120316
  Receipt Date: 20120306
  Transmission Date: 20120608
  Serious: Yes (Other)
  Sender: FDA-Public Use
  Company Number: A0968761A

PATIENT
  Sex: Female

DRUGS (1)
  1. ASPIRIN + CAFFEINE + SALICYLAMIDE POWDER (ASPIRIN+CAFFEINE+SALICYLA) [Suspect]
     Dosage: , ORAL
     Route: 048

REACTIONS (4)
  - BLEEDING VARICOSE VEIN [None]
  - GASTRIC DISORDER [None]
  - WITHDRAWAL SYNDROME [None]
  - DRUG DEPENDENCE [None]
